FAERS Safety Report 6425868-9 (Version None)
Quarter: 2009Q4

REPORT INFORMATION
  Report Type: 
  Country: None (occurrence: None)
  Receive Date: 20091103
  Receipt Date: 20090923
  Transmission Date: 20100525
  Serious: No
  Sender: FDA-Public Use
  Company Number: US-ABBOTT-09P-163-0599628-00

PATIENT
  Sex: Female

DRUGS (3)
  1. BIAXIN [Suspect]
     Indication: HELICOBACTER INFECTION
     Dates: start: 20090919
  2. ZEGERID [Suspect]
     Indication: HELICOBACTER INFECTION
     Dates: start: 20090919
  3. AMOXICILLIN [Suspect]
     Indication: HELICOBACTER INFECTION
     Dates: start: 20090919

REACTIONS (4)
  - DIZZINESS [None]
  - HEADACHE [None]
  - PAIN IN EXTREMITY [None]
  - POLLAKIURIA [None]
